FAERS Safety Report 24918570 (Version 2)
Quarter: 2025Q1

REPORT INFORMATION
  Report Type: Spontaneous
  Country: US (occurrence: US)
  Receive Date: 20250203
  Receipt Date: 20250215
  Transmission Date: 20250408
  Serious: No
  Sender: ABBVIE
  Company Number: US-ABBVIE-6114389

PATIENT
  Age: 80 Year
  Sex: Female

DRUGS (3)
  1. SYNTHROID [Suspect]
     Active Substance: LEVOTHYROXINE SODIUM
     Indication: Hypothyroidism
     Route: 048
  2. MINERALS [Concomitant]
     Active Substance: MINERALS
     Indication: Product used for unknown indication
  3. VITAMINS [Concomitant]
     Active Substance: VITAMINS
     Indication: Product used for unknown indication

REACTIONS (8)
  - Androgenetic alopecia [Recovering/Resolving]
  - Alopecia [Unknown]
  - Rash vesicular [Unknown]
  - Pruritus [Not Recovered/Not Resolved]
  - Dry skin [Not Recovered/Not Resolved]
  - Hot flush [Not Recovered/Not Resolved]
  - Scratch [Unknown]
  - Dry skin [Not Recovered/Not Resolved]

NARRATIVE: CASE EVENT DATE: 20240101
